FAERS Safety Report 9234390 (Version 5)
Quarter: 2013Q4

REPORT INFORMATION
  Report Type: Spontaneous
  Country: US (occurrence: US)
  Receive Date: 20130416
  Receipt Date: 20131231
  Transmission Date: 20140711
  Serious: Yes (Hospitalization, Other)
  Sender: FDA-Public Use
  Company Number: US-009507513-1304USA005918

PATIENT
  Sex: Female
  Weight: 115.65 kg

DRUGS (1)
  1. NUVARING [Suspect]
     Indication: CONTRACEPTION
     Dosage: UNK
     Route: 067
     Dates: start: 2010, end: 20111123

REACTIONS (13)
  - Bronchitis [Unknown]
  - Pulmonary embolism [Unknown]
  - Deep vein thrombosis [Recovered/Resolved]
  - Cyst removal [Unknown]
  - Leukocytosis [Unknown]
  - Urinary retention [Recovered/Resolved]
  - Staphylococcal abscess [Unknown]
  - Hypertension [Unknown]
  - Endometrial hyperplasia [Unknown]
  - Uterine leiomyoma [Unknown]
  - Smear cervix abnormal [Unknown]
  - Headache [Unknown]
  - Dyslipidaemia [Unknown]
